FAERS Safety Report 6051021-7 (Version None)
Quarter: 2009Q1

REPORT INFORMATION
  Report Type: 
  Country: None (occurrence: None)
  Receive Date: 20090122
  Receipt Date: 20090122
  Transmission Date: 20090719
  Serious: Yes (Life-Threatening, Hospitalization, Disabling, Other)
  Sender: FDA-Public Use
  Company Number: None

PATIENT
  Age: 77 Year
  Sex: Male
  Weight: 81.6475 kg

DRUGS (1)
  1. AVALIDE [Suspect]
     Indication: HYPERTENSION
     Dosage: ONCE DAILY PO
     Route: 048
     Dates: start: 20061006, end: 20070409

REACTIONS (13)
  - ABDOMINAL DISTENSION [None]
  - APLASTIC ANAEMIA [None]
  - ASTHENIA [None]
  - CHILLS [None]
  - COUGH [None]
  - DIARRHOEA [None]
  - FACE OEDEMA [None]
  - MUSCLE SPASMS [None]
  - MYELODYSPLASTIC SYNDROME [None]
  - OEDEMA PERIPHERAL [None]
  - RESPIRATORY DISORDER [None]
  - SWOLLEN TONGUE [None]
  - TREMOR [None]
